FAERS Safety Report 4909620-9 (Version None)
Quarter: 2006Q1

REPORT INFORMATION
  Report Type: 
  Country: None (occurrence: None)
  Receive Date: 20060213
  Receipt Date: 20050720
  Transmission Date: 20060701
  Serious: Yes (Hospitalization, Other)
  Sender: FDA-Public Use
  Company Number: US-MERCK-0507USA03171

PATIENT
  Age: 76 Year
  Sex: Female
  Weight: 102 kg

DRUGS (2)
  1. VIOXX [Suspect]
     Indication: ARTHRITIS
     Route: 048
     Dates: start: 20020516, end: 20040901
  2. ADVIL [Concomitant]
     Indication: PAIN
     Route: 065

REACTIONS (12)
  - ABDOMINAL PAIN [None]
  - APHASIA [None]
  - CARDIAC FAILURE CONGESTIVE [None]
  - CEREBROVASCULAR ACCIDENT [None]
  - CHEST PAIN [None]
  - CONFUSIONAL STATE [None]
  - CONVULSION [None]
  - CYSTITIS [None]
  - DEPRESSED LEVEL OF CONSCIOUSNESS [None]
  - DYSPNOEA [None]
  - FALL [None]
  - SINUSITIS [None]
